FAERS Safety Report 8519473-8 (Version None)
Quarter: 2012Q3

REPORT INFORMATION
  Report Type: 
  Country: None (occurrence: None)
  Receive Date: 20120718
  Receipt Date: 20120716
  Transmission Date: 20120928
  Serious: No
  Sender: FDA-Public Use
  Company Number: US-PFIZER INC-2012171131

PATIENT

DRUGS (9)
  1. ARICEPT [Suspect]
     Dosage: UNK
  2. ADVIL [Suspect]
     Dosage: UNK
  3. REMERON [Suspect]
     Dosage: UNK
  4. CYCLOBENZAPRINE [Suspect]
     Dosage: UNK
  5. LISINOPRIL [Suspect]
     Dosage: UNK
  6. NAMENDA [Suspect]
     Dosage: UNK
  7. GABAPENTIN [Suspect]
     Dosage: UNK
  8. NABUMETONE [Suspect]
     Dosage: UNK
  9. TRAMADOL HCL [Suspect]
     Dosage: UNK

REACTIONS (1)
  - DRUG SCREEN POSITIVE [None]
